FAERS Safety Report 20948661 (Version 1)
Quarter: 2022Q2

REPORT INFORMATION
  Report Type: Spontaneous
  Country: CA (occurrence: CA)
  Receive Date: 20220612
  Receipt Date: 20220612
  Transmission Date: 20220721
  Serious: Yes (Death, Other)
  Sender: FDA-Public Use
  Company Number: CA-SA-SAC20220609001347

PATIENT
  Age: 80 Year
  Sex: Male

DRUGS (22)
  1. SILODOSIN [Suspect]
     Active Substance: SILODOSIN
     Dosage: UNK
  2. LOVENOX [Suspect]
     Active Substance: ENOXAPARIN SODIUM
     Dosage: UNK
  3. AMIODARONE [Concomitant]
     Active Substance: AMIODARONE
  4. ATORVASTATIN [Concomitant]
     Active Substance: ATORVASTATIN
  5. CEFTRIAXONE [Concomitant]
     Active Substance: CEFTRIAXONE
  6. DEXAMETHASONE [Concomitant]
     Active Substance: DEXAMETHASONE
  7. DILTIAZEM [Concomitant]
     Active Substance: DILTIAZEM
  8. DOXYCYCLINE [Concomitant]
     Active Substance: DOXYCYCLINE
  9. FLUTICASONE [Concomitant]
     Active Substance: FLUTICASONE
  10. FUROSEMIDE [Concomitant]
     Active Substance: FUROSEMIDE
  11. LENALIDOMIDE [Concomitant]
     Active Substance: LENALIDOMIDE
  12. METHYLPREDNISOLONE [Concomitant]
     Active Substance: METHYLPREDNISOLONE
  13. OLUMIANT [Concomitant]
     Active Substance: BARICITINIB
  14. PANTOPRAZOLE [Concomitant]
     Active Substance: PANTOPRAZOLE
  15. PIPERACILLIN SODIUM\TAZOBACTAM SODIUM [Concomitant]
     Active Substance: PIPERACILLIN SODIUM\TAZOBACTAM SODIUM
  16. POLYETHYLENE GLYCOLS [Concomitant]
     Active Substance: POLYETHYLENE GLYCOLS
  17. ALBUTEROL [Concomitant]
     Active Substance: ALBUTEROL
  18. RAPAFLO [Concomitant]
     Active Substance: SILODOSIN
  19. TIOTROPIUM BROMIDE [Concomitant]
     Active Substance: TIOTROPIUM BROMIDE
  20. VITAMIN D NOS [Concomitant]
     Active Substance: VITAMIN D NOS
  21. ASPIRIN [Concomitant]
     Active Substance: ASPIRIN
  22. INSULIN NOS [Concomitant]
     Active Substance: INSULIN NOS

REACTIONS (5)
  - Procedural shock [Fatal]
  - Arterial haemorrhage [Fatal]
  - Gastric haemorrhage [Fatal]
  - Shock haemorrhagic [Fatal]
  - Haemostasis [Fatal]
